FAERS Safety Report 9225463 (Version 2)
Quarter: 2013Q2

REPORT INFORMATION
  Report Type: Spontaneous
  Country: NL (occurrence: NL)
  Receive Date: 20130411
  Receipt Date: 20130523
  Transmission Date: 20140414
  Serious: Yes (Hospitalization)
  Sender: FDA-Public Use
  Company Number: NL-ROCHE-1210905

PATIENT
  Age: 41 Year
  Sex: Male

DRUGS (4)
  1. ACTILYSE [Suspect]
     Indication: SEPTIC SHOCK
     Route: 065
  2. ACTILYSE [Suspect]
     Indication: PURPURA FULMINANS
  3. HEPARIN [Suspect]
     Indication: SEPTIC SHOCK
     Dosage: 1000 U
     Route: 065
  4. HEPARIN [Suspect]
     Indication: PURPURA FULMINANS

REACTIONS (2)
  - Epistaxis [Recovered/Resolved]
  - Obstructive airways disorder [Recovered/Resolved]
